FAERS Safety Report 18946361 (Version 1)
Quarter: 2021Q1

REPORT INFORMATION
  Report Type: Spontaneous
  Country: NL (occurrence: NL)
  Receive Date: 20210226
  Receipt Date: 20210226
  Transmission Date: 20210420
  Serious: Yes (Death)
  Sender: FDA-Public Use
  Company Number: NL-PURDUE-USA-2021-0220321

PATIENT
  Age: 94 Year
  Sex: Female
  Weight: 43 kg

DRUGS (5)
  1. OMEPRAZOL                          /00661201/ [Concomitant]
     Active Substance: OMEPRAZOLE
     Dosage: UNK [MAAGSAPRESISTENTE CAPSULE, 40 MG (MILLIGRAM)]
  2. OXYCODONE HYDROCHLORIDE. [Suspect]
     Active Substance: OXYCODONE HYDROCHLORIDE
     Indication: PAIN
     Dosage: 5 MG, Q8H [3D5MG] STRENGTH 5 MG
     Route: 065
     Dates: start: 20210202, end: 20210205
  3. COLECALCIFEROL [Concomitant]
     Active Substance: CHOLECALCIFEROL
     Dosage: UNK [CAPSULE, 800 EENHEDEN]
  4. MACROGOL [Concomitant]
     Active Substance: POLYETHYLENE GLYCOLS
     Dosage: UNK [OPLOSSING VOOR DRANK]
  5. PARACETAMOL [Concomitant]
     Active Substance: ACETAMINOPHEN
     Dosage: 500 MG, UNK [TABLET]

REACTIONS (4)
  - Oxygen saturation decreased [Fatal]
  - Pyrexia [Fatal]
  - Vomiting [Fatal]
  - Nausea [Fatal]

NARRATIVE: CASE EVENT DATE: 20210206
